FAERS Safety Report 18877810 (Version 1)
Quarter: 2021Q1

REPORT INFORMATION
  Report Type: Spontaneous
  Country: DE (occurrence: DE)
  Receive Date: 20210211
  Receipt Date: 20210211
  Transmission Date: 20210420
  Serious: Yes (Other)
  Sender: FDA-Public Use
  Company Number: DE-BIOFRONTERA-000727

PATIENT
  Age: 51 Year
  Sex: Female

DRUGS (2)
  1. AMELUZ [Suspect]
     Active Substance: AMINOLEVULINIC ACID HYDROCHLORIDE
     Indication: ACTINIC KERATOSIS
     Route: 061
     Dates: start: 20210111, end: 20210111
  2. OFLOXACIN. [Concomitant]
     Active Substance: OFLOXACIN
     Indication: EYE INFLAMMATION
     Dates: start: 20210109, end: 20210110

REACTIONS (12)
  - Hypertensive crisis [Recovered/Resolved]
  - Pain [Unknown]
  - Application site pustules [Recovered/Resolved]
  - Swelling [Recovered/Resolved]
  - Chills [Recovered/Resolved]
  - Pallor [Unknown]
  - Blood pressure decreased [Unknown]
  - Burning sensation [Unknown]
  - Asthenia [Unknown]
  - Swelling of eyelid [Recovered/Resolved]
  - Hyporesponsive to stimuli [Recovered/Resolved]
  - Application site erythema [Recovered/Resolved]

NARRATIVE: CASE EVENT DATE: 202101
